FAERS Safety Report 4263121-2 (Version None)
Quarter: 2004Q1

REPORT INFORMATION
  Report Type: 
  Country: None (occurrence: None)
  Receive Date: 20040105
  Receipt Date: 20021112
  Transmission Date: 20041129
  Serious: Yes (Death, Life-Threatening, Hospitalization)
  Sender: FDA-Public Use
  Company Number: US-BRISTOL-MYERS SQUIBB COMPANY-12108031

PATIENT
  Age: 73 Year
  Sex: Female
  Weight: 71 kg

DRUGS (9)
  1. CISPLATIN [Suspect]
     Indication: BLADDER CANCER
     Dosage: CYCLE 2: STARTED AT A 50% REDUCED DOSE ON 22-NOV-02
     Dates: start: 20030124, end: 20030124
  2. PACLITAXEL [Suspect]
     Indication: BLADDER CANCER
     Dosage: CYCLE 1: 01-NOV-02  CYCLE 2: STARTED AT A 50% REDUCED DOSE ON 22-NOV-02
     Dates: start: 20030131, end: 20030131
  3. GEMCITABINE [Suspect]
     Indication: BLADDER CANCER
     Dosage: CYCLE 1: 01-NOV-02  CYCLE 2: STARTED AT A 50% REDUCED DOSE ON 22-NOV-02
     Dates: start: 20030131, end: 20030131
  4. GRANOCYTE [Concomitant]
     Dates: start: 20021111, end: 20021114
  5. RINGERS SOLUTION, LACTATED [Concomitant]
     Dates: start: 20021111
  6. OPTINEM [Concomitant]
     Route: 042
  7. VANCOMYCIN [Concomitant]
  8. ENTEROBENE [Concomitant]
  9. AMPHO-MORONAL [Concomitant]
     Route: 048

REACTIONS (5)
  - BLADDER NECROSIS [None]
  - CYSTITIS [None]
  - DIARRHOEA [None]
  - NECROSIS [None]
  - NEUTROPENIA [None]
